FAERS Safety Report 8608910 (Version 2)
Quarter: 2012Q4

REPORT INFORMATION
  Report Type: 
  Country: US (occurrence: US)
  Receive Date: 20120611
  Receipt Date: 20121228
  Transmission Date: 20130627
  Serious: Yes (Hospitalization)
  Sender: FDA-Public Use
  Company Number: US-ACTELION-A-US2012-66865

PATIENT
  Age: 57 Year
  Sex: Female

DRUGS (3)
  1. TRACLEER [Suspect]
     Indication: PULMONARY ARTERIAL HYPERTENSION
     Dosage: UNK
     Route: 048
     Dates: start: 20050331
  2. REVATIO [Concomitant]
  3. COUMADIN [Concomitant]

REACTIONS (4)
  - Cellulitis [Unknown]
  - Pneumonia [Unknown]
  - Pulmonary hypertension [Unknown]
  - Bronchitis [Unknown]
